FAERS Safety Report 24904834 (Version 1)
Quarter: 2025Q1

REPORT INFORMATION
  Report Type: Spontaneous
  Country: JP (occurrence: JP)
  Receive Date: 20250130
  Receipt Date: 20250130
  Transmission Date: 20250409
  Serious: Yes (Death, Other)
  Sender: CITIUS PHARMACEUTICALS
  Company Number: JP-CITIUS PHARMACEUTICALS, INC.-2024CTS000037

PATIENT
  Age: 90 Year
  Sex: Male

DRUGS (1)
  1. DENILEUKIN DIFTITOX [Suspect]
     Active Substance: DENILEUKIN DIFTITOX
     Indication: Cutaneous T-cell lymphoma
     Dosage: 4.5 MICROGRAM, QD
     Route: 041
     Dates: start: 20241003, end: 20241005

REACTIONS (5)
  - Pneumonia [Fatal]
  - Malaise [Recovered/Resolved]
  - Blood albumin decreased [Recovered/Resolved]
  - Fatigue [Recovered/Resolved]
  - Infusion related reaction [Recovered/Resolved]

NARRATIVE: CASE EVENT DATE: 20241003
